FAERS Safety Report 9270333 (Version 3)
Quarter: 2013Q4

REPORT INFORMATION
  Report Type: Report from Study
  Country: CA (occurrence: CA)
  Receive Date: 20130503
  Receipt Date: 20131025
  Transmission Date: 20140711
  Serious: Yes (Hospitalization, Other)
  Sender: FDA-Public Use
  Company Number: CA-JNJFOC-20130411702

PATIENT
  Age: 54 Year
  Sex: Male
  Weight: 87 kg

DRUGS (10)
  1. REMICADE [Suspect]
     Indication: COLITIS ULCERATIVE
     Dosage: 32 INFUSIONS
     Route: 042
     Dates: start: 20080507
  2. REMICADE [Suspect]
     Indication: COLITIS ULCERATIVE
     Route: 042
     Dates: start: 2008
  3. REMICADE [Suspect]
     Indication: CROHN^S DISEASE
     Dosage: 32 INFUSIONS
     Route: 042
     Dates: start: 20080507
  4. REMICADE [Suspect]
     Indication: CROHN^S DISEASE
     Route: 042
     Dates: start: 2008
  5. GLYBURIDE [Concomitant]
     Indication: TYPE 2 DIABETES MELLITUS
     Dosage: 10 (UNITS UNSPECIFIED)
     Route: 065
  6. METFORMIN [Concomitant]
     Indication: TYPE 2 DIABETES MELLITUS
     Dosage: 1 (UNITS UNSPECIFIED)
     Route: 065
  7. RAMIPRIL [Concomitant]
     Dosage: 10 (UNITS UNSPECIFIED)
     Route: 065
  8. METOPROLOL [Concomitant]
     Indication: HYPERTENSION
     Route: 065
  9. FUROSEMIDE [Concomitant]
     Dosage: 40 (UNITS UNSPECIFIED)
     Route: 065
  10. CRESTOR [Concomitant]
     Indication: DYSLIPIDAEMIA
     Dosage: 20(UNITS UNSPECIFIED) AT BED TIME
     Route: 065

REACTIONS (5)
  - Sepsis [Recovered/Resolved]
  - Urinary retention [Recovering/Resolving]
  - Urinary tract infection [Recovered/Resolved]
  - Hypertension [Unknown]
  - Prostatic disorder [Unknown]
